FAERS Safety Report 4551941-6 (Version None)
Quarter: 2005Q1

REPORT INFORMATION
  Report Type: 
  Country: None (occurrence: None)
  Receive Date: 20050113
  Receipt Date: 20041229
  Transmission Date: 20050727
  Serious: Yes (Hospitalization, Other)
  Sender: FDA-Public Use
  Company Number: 2004S1001941

PATIENT
  Age: 30 Year
  Sex: Male

DRUGS (6)
  1. EXTENDED PHENYTOIN SODIUM [Suspect]
     Indication: CONVULSION
     Dosage: 300 MG QHS, THEN 200 MG BID, ORAL
     Route: 048
     Dates: start: 20040501, end: 20040601
  2. EXTENDED PHENYTOIN SODIUM [Suspect]
     Indication: CONVULSION
     Dosage: 300 MG QHS, THEN 200 MG BID, ORAL
     Route: 048
     Dates: start: 20040301
  3. SERTRALINE HCL [Concomitant]
  4. ATENOLOL [Concomitant]
  5. DIPHENHYDRAMINE HCL [Concomitant]
  6. OXYCODONE AND ACETAMINOPHEN [Concomitant]

REACTIONS (4)
  - ALOPECIA [None]
  - ANTICONVULSANT DRUG LEVEL DECREASED [None]
  - GRAND MAL CONVULSION [None]
  - PYREXIA [None]
